FAERS Safety Report 9168255 (Version 1)
Quarter: 2013Q1

REPORT INFORMATION
  Report Type: Spontaneous
  Country: DK (occurrence: None)
  Receive Date: 20130304
  Receipt Date: 20130304
  Transmission Date: 20140127
  Serious: Yes (Other)
  Sender: FDA-Public Use
  Company Number: 0218592

PATIENT
  Sex: Female

DRUGS (1)
  1. TACHOSIL [Suspect]

REACTIONS (2)
  - Ovarian adhesion [None]
  - Ovarian disorder [None]
